FAERS Safety Report 4578849-4 (Version None)
Quarter: 2005Q1

REPORT INFORMATION
  Report Type: 
  Country: None (occurrence: None)
  Receive Date: 20050211
  Receipt Date: 20050204
  Transmission Date: 20050727
  Serious: Yes (Other)
  Sender: FDA-Public Use
  Company Number: PHHO2005CO02270

PATIENT
  Age: 83 Year
  Sex: Male

DRUGS (3)
  1. ZOMETA [Suspect]
     Indication: METASTASES TO BONE
     Dosage: 4 MG, UNK
     Route: 042
     Dates: start: 20050202
  2. AMARYL [Concomitant]
  3. NIMOTOP [Concomitant]

REACTIONS (5)
  - BURNING SENSATION [None]
  - EYELID OEDEMA [None]
  - HYPERSENSITIVITY [None]
  - PAIN [None]
  - PRURITUS GENERALISED [None]
